FAERS Safety Report 8325024-3 (Version None)
Quarter: 2012Q2

REPORT INFORMATION
  Report Type: 
  Country: None (occurrence: None)
  Receive Date: 20120501
  Receipt Date: 20100311
  Transmission Date: 20120825
  Serious: No
  Sender: FDA-Public Use
  Company Number: US-TEVA-2010001467

PATIENT
  Sex: Female
  Weight: 102.15 kg

DRUGS (6)
  1. NUVIGIL [Suspect]
     Indication: FATIGUE
     Dosage: 150 ;
     Route: 048
     Dates: start: 20100308
  2. CARBIDOPA-LEVO [Concomitant]
     Dates: start: 20100201
  3. FENTANYL-100 [Concomitant]
     Dates: start: 20050101
  4. DARVOCET [Concomitant]
     Dates: start: 20000101
  5. FLUOXETINE [Concomitant]
  6. ALPRAZOLAM [Concomitant]
     Dates: start: 19800101

REACTIONS (1)
  - NAUSEA [None]
